FAERS Safety Report 19134402 (Version 2)
Quarter: 2021Q2

REPORT INFORMATION
  Report Type: Spontaneous
  Country: US (occurrence: US)
  Receive Date: 20210414
  Receipt Date: 20210503
  Transmission Date: 20210717
  Serious: Yes (Hospitalization, Other)
  Sender: FDA-Public Use
  Company Number: US-KERYX BIOPHARMACEUTICALS INC.-2021US008070

PATIENT
  Age: 26 Year
  Sex: Male
  Weight: 76.5 kg

DRUGS (3)
  1. AURYXIA [Suspect]
     Active Substance: TETRAFERRIC TRICITRATE DECAHYDRATE
     Dosage: 1 GRAM (TABLETS) WITH MEALS, TID
     Route: 048
     Dates: start: 20210413
  2. AURYXIA [Suspect]
     Active Substance: TETRAFERRIC TRICITRATE DECAHYDRATE
     Indication: PRODUCT USED FOR UNKNOWN INDICATION
     Dosage: 2 GRAM (TABLETS) WITH MEALS, TID
     Route: 048
     Dates: start: 20201119, end: 20210406
  3. PARSABIV [Concomitant]
     Active Substance: ETELCALCETIDE HYDROCHLORIDE

REACTIONS (1)
  - Seizure [Not Recovered/Not Resolved]

NARRATIVE: CASE EVENT DATE: 20210406
